FAERS Safety Report 5697333-8 (Version None)
Quarter: 2008Q2

REPORT INFORMATION
  Report Type: 
  Country: None (occurrence: None)
  Receive Date: 20080408
  Receipt Date: 20080328
  Transmission Date: 20081010
  Serious: Yes (Hospitalization)
  Sender: FDA-Public Use
  Company Number: ES-BAYER-200815650GPV

PATIENT
  Age: 76 Year
  Sex: Male
  Weight: 77 kg

DRUGS (1)
  1. SORAFENIB [Suspect]
     Indication: HEPATIC NEOPLASM MALIGNANT
     Route: 048
     Dates: start: 20060208, end: 20080318

REACTIONS (1)
  - RENAL FAILURE [None]
